FAERS Safety Report 9219824 (Version 1)
Quarter: 2013Q2

REPORT INFORMATION
  Report Type: Spontaneous
  Country: US (occurrence: None)
  Receive Date: 20130408
  Receipt Date: 20130408
  Transmission Date: 20140414
  Serious: Yes (Hospitalization)
  Sender: FDA-Public Use
  Company Number: None

PATIENT
  Age: 65 Year
  Sex: Male
  Weight: 104 kg

DRUGS (2)
  1. MORPHINE [Suspect]
     Indication: PAIN
     Dosage: 15 MG  PRN  PO
     Route: 048
     Dates: start: 20130214, end: 20130215
  2. MORPHINE [Suspect]
     Dosage: 30 MG  BID  PO
     Route: 048
     Dates: start: 20130214, end: 20130215

REACTIONS (1)
  - Respiratory depression [None]
